FAERS Safety Report 9720330 (Version 2)
Quarter: 2014Q2

REPORT INFORMATION
  Report Type: Report from Study
  Country: US (occurrence: US)
  Receive Date: 20131129
  Receipt Date: 20140527
  Transmission Date: 20141212
  Serious: Yes (Other)
  Sender: FDA-Public Use
  Company Number: US-ROCHE-1310982

PATIENT
  Age: 75 Year
  Sex: Female

DRUGS (10)
  1. ROCEPHIN [Suspect]
     Indication: HYDRONEPHROSIS
     Route: 065
     Dates: start: 20131010
  2. ROCEPHIN [Suspect]
     Indication: URINARY TRACT INFECTION
  3. BACTRIM [Suspect]
     Indication: PRODUCT USED FOR UNKNOWN INDICATION
     Route: 065
  4. TARCEVA [Suspect]
     Indication: LUNG CARCINOMA CELL TYPE UNSPECIFIED STAGE IV
     Route: 048
     Dates: start: 201312
  5. PANTOPRAZOLE [Concomitant]
  6. ALPRAZOLAM [Concomitant]
  7. MILK OF MAGNESIA [Concomitant]
  8. TYLENOL [Concomitant]
  9. ALBUTEROL SULFATE [Concomitant]
     Route: 055
  10. ONDANSETRON [Concomitant]

REACTIONS (30)
  - Chest pain [Unknown]
  - Palpitations [Unknown]
  - Atrial fibrillation [Recovered/Resolved]
  - Dyspnoea [Unknown]
  - Productive cough [Unknown]
  - Constipation [Unknown]
  - Stress urinary incontinence [Unknown]
  - Breath sounds abnormal [Unknown]
  - Rash [Not Recovered/Not Resolved]
  - Cough [Unknown]
  - Eye infection [Unknown]
  - Dry skin [Not Recovered/Not Resolved]
  - Skin exfoliation [Not Recovered/Not Resolved]
  - Diarrhoea [Not Recovered/Not Resolved]
  - Nausea [Not Recovered/Not Resolved]
  - Back pain [Unknown]
  - White blood cell count increased [Unknown]
  - Haemoglobin decreased [Unknown]
  - Haematocrit decreased [Unknown]
  - Neutrophil count increased [Unknown]
  - Lymphocyte count decreased [Unknown]
  - Platelet count decreased [Unknown]
  - Neutrophil count increased [Unknown]
  - Blood glucose increased [Unknown]
  - Blood urea increased [Unknown]
  - Blood creatinine increased [Unknown]
  - Blood potassium decreased [Unknown]
  - Blood calcium decreased [Unknown]
  - International normalised ratio decreased [Unknown]
  - Blood chloride increased [Unknown]
